FAERS Safety Report 14976934 (Version 1)
Quarter: 2018Q2

REPORT INFORMATION
  Report Type: Spontaneous
  Country: CZ (occurrence: CZ)
  Receive Date: 20180605
  Receipt Date: 20180605
  Transmission Date: 20180711
  Serious: Yes (Disabling)
  Sender: FDA-Public Use
  Company Number: CZ-TEVA-2018-CZ-902049

PATIENT
  Age: 70 Year
  Sex: Female
  Weight: 90 kg

DRUGS (4)
  1. EUCREAS [Concomitant]
     Active Substance: METFORMIN HYDROCHLORIDE\VILDAGLIPTIN
     Indication: DIABETES MELLITUS
     Dosage: THE DOSAGE: 1-0-1.
     Route: 065
     Dates: start: 201103
  2. CARZAP [Concomitant]
     Indication: HYPERTENSION
     Route: 048
     Dates: start: 2011
  3. ATORVASTATIN [Concomitant]
     Active Substance: ATORVASTATIN
     Indication: HYPERLIPIDAEMIA
     Dosage: THE DOSAGE: 0-0-1.
     Route: 048
     Dates: start: 2011
  4. TRAMADOL. [Suspect]
     Active Substance: TRAMADOL
     Indication: BACK PAIN
     Route: 048
     Dates: start: 20170908, end: 20171210

REACTIONS (1)
  - Macular oedema [Not Recovered/Not Resolved]

NARRATIVE: CASE EVENT DATE: 20170908
